FAERS Safety Report 9880724 (Version 1)
Quarter: 2014Q1

REPORT INFORMATION
  Report Type: Report from Study
  Country: US (occurrence: US)
  Receive Date: 20140207
  Receipt Date: 20140207
  Transmission Date: 20141002
  Serious: Yes (Other)
  Sender: FDA-Public Use
  Company Number: US-ROCHE-1341113

PATIENT
  Sex: Male
  Weight: 29.06 kg

DRUGS (1)
  1. ERIVEDGE [Suspect]
     Indication: NEOPLASM MALIGNANT
     Route: 048

REACTIONS (1)
  - General physical health deterioration [Not Recovered/Not Resolved]
